FAERS Safety Report 11129026 (Version 2)
Quarter: 2015Q2

REPORT INFORMATION
  Report Type: Spontaneous
  Country: ES (occurrence: ES)
  Receive Date: 20150521
  Receipt Date: 20150528
  Transmission Date: 20150821
  Serious: Yes (Disabling)
  Sender: FDA-Public Use
  Company Number: ES-ASTRAZENECA-2015SE14311

PATIENT
  Sex: Female

DRUGS (4)
  1. FASLODEX [Interacting]
     Active Substance: FULVESTRANT
     Indication: BREAST CANCER METASTATIC
     Route: 030
     Dates: start: 2015
  2. ANTIDEPRESSANT [Interacting]
     Active Substance: UNSPECIFIED INGREDIENT
  3. FENTANYL. [Interacting]
     Active Substance: FENTANYL
     Indication: PAIN
     Dates: start: 2014
  4. FASLODEX [Suspect]
     Active Substance: FULVESTRANT
     Indication: BREAST CANCER METASTATIC
     Route: 030
     Dates: start: 201406, end: 201410

REACTIONS (5)
  - Dehydration [Unknown]
  - Drug interaction [Unknown]
  - Tinnitus [Unknown]
  - Hyperhidrosis [Unknown]
  - Dizziness [Unknown]

NARRATIVE: CASE EVENT DATE: 2014
